FAERS Safety Report 7016198-5 (Version None)
Quarter: 2010Q3

REPORT INFORMATION
  Report Type: 
  Country: None (occurrence: None)
  Receive Date: 20100927
  Receipt Date: 20091221
  Transmission Date: 20110219
  Serious: No
  Sender: FDA-Public Use
  Company Number: US-ASTRAZENECA-2009SE32986

PATIENT
  Age: 66 Year
  Sex: Female

DRUGS (4)
  1. ARIMIDEX [Suspect]
     Route: 048
     Dates: start: 20060101, end: 20070101
  2. METFORMIN [Concomitant]
     Indication: DIABETES MELLITUS
  3. CRESTOR [Concomitant]
     Indication: BLOOD CHOLESTEROL
  4. LISINOPRIL [Concomitant]
     Indication: HYPERTENSION

REACTIONS (2)
  - BONE PAIN [None]
  - GAIT DISTURBANCE [None]
